FAERS Safety Report 4603745-3 (Version None)
Quarter: 2005Q1

REPORT INFORMATION
  Report Type: 
  Country: None (occurrence: None)
  Receive Date: 20050308
  Receipt Date: 20050308
  Transmission Date: 20050727
  Serious: Yes (Other)
  Sender: FDA-Public Use
  Company Number: None

PATIENT
  Age: 49 Year
  Sex: Male
  Weight: 88.905 kg

DRUGS (6)
  1. GEODON [Suspect]
     Indication: PSYCHOTIC DISORDER
     Dosage: 120MG  BID  ORAL
     Route: 048
     Dates: start: 20050125, end: 20050202
  2. DEPAKOTE [Concomitant]
  3. BENZTROPINE [Concomitant]
  4. ALUMINUM HYDROXIDE AND MAGNESIUM TRISILICATE [Concomitant]
  5. MOM [Concomitant]
  6. ACETAMINOPHEN [Concomitant]

REACTIONS (1)
  - OEDEMA PERIPHERAL [None]
